FAERS Safety Report 17566389 (Version 1)
Quarter: 2020Q1

REPORT INFORMATION
  Report Type: Other
  Country: DE (occurrence: DE)
  Receive Date: 20200320
  Receipt Date: 20200320
  Transmission Date: 20200409
  Serious: Yes (Life-Threatening, Hospitalization, Other)
  Sender: FDA-Public Use
  Company Number: DE-RECORDATI RARE DISEASES-2081823

PATIENT
  Age: 5 Year
  Sex: Female
  Weight: 14.7 kg

DRUGS (5)
  1. CYSTADANE [Suspect]
     Active Substance: BETAINE
     Indication: HOMOCYSTINURIA
     Route: 048
     Dates: start: 19990414
  2. CYSTADANE [Suspect]
     Active Substance: BETAINE
     Route: 048
  3. CYSTADANE [Suspect]
     Active Substance: BETAINE
  4. PYRIDOXINE [Concomitant]
     Active Substance: PYRIDOXINE
  5. CYSTADANE [Suspect]
     Active Substance: BETAINE
     Route: 048
     Dates: start: 19990707

REACTIONS (12)
  - Intracranial pressure increased [Recovered/Resolved]
  - Headache [Recovered/Resolved]
  - Brain oedema [Recovered/Resolved]
  - Overdose [Unknown]
  - Intellectual disability [Unknown]
  - Vomiting [Recovered/Resolved]
  - Inappropriate schedule of product administration [Unknown]
  - VIth nerve paralysis [Recovered/Resolved]
  - Hypermethioninaemia [Recovered/Resolved]
  - Off label use [Unknown]
  - Upper respiratory tract infection [Unknown]
  - Papilloedema [Recovered/Resolved]
